FAERS Safety Report 6857840-9 (Version None)
Quarter: 2010Q3

REPORT INFORMATION
  Report Type: 
  Country: None (occurrence: None)
  Receive Date: 20100719
  Receipt Date: 20080131
  Transmission Date: 20110219
  Serious: Yes (Other)
  Sender: FDA-Public Use
  Company Number: US-PFIZER INC-2008010332

PATIENT
  Sex: Female
  Weight: 56.818 kg

DRUGS (4)
  1. CHANTIX [Suspect]
     Indication: SMOKING CESSATION THERAPY
     Route: 048
     Dates: start: 20070901
  2. NAPROXEN [Concomitant]
     Indication: RHEUMATOID ARTHRITIS
     Route: 048
  3. NAPROXEN [Concomitant]
     Indication: OSTEOARTHRITIS
  4. FLEXERIL [Concomitant]
     Indication: MUSCLE RELAXANT THERAPY
     Route: 048

REACTIONS (5)
  - ABNORMAL DREAMS [None]
  - BLOOD TEST ABNORMAL [None]
  - CHEST PAIN [None]
  - MEDICATION ERROR [None]
  - NAUSEA [None]
